FAERS Safety Report 7564287-9 (Version None)
Quarter: 2011Q2

REPORT INFORMATION
  Report Type: 
  Country: None (occurrence: None)
  Receive Date: 20110622
  Receipt Date: 20110609
  Transmission Date: 20111010
  Serious: Yes (Hospitalization)
  Sender: FDA-Public Use
  Company Number: PHFR2011GB03381

PATIENT
  Sex: Male

DRUGS (3)
  1. CLOZAPINE [Suspect]
     Indication: SCHIZOPHRENIA
     Route: 048
     Dates: start: 20100304, end: 20110526
  2. CLOZAPINE [Suspect]
     Route: 048
     Dates: start: 20110610
  3. PHENOBARBITAL TAB [Suspect]

REACTIONS (6)
  - SEDATION [None]
  - PNEUMONIA ASPIRATION [None]
  - LOWER RESPIRATORY TRACT INFECTION [None]
  - LOSS OF CONSCIOUSNESS [None]
  - CONFUSIONAL STATE [None]
  - OVERDOSE [None]
